FAERS Safety Report 13471503 (Version 1)
Quarter: 2017Q2

REPORT INFORMATION
  Report Type: Spontaneous
  Country: US (occurrence: US)
  Receive Date: 20170421
  Receipt Date: 20170421
  Transmission Date: 20170830
  Serious: No
  Sender: FDA-Public Use
  Company Number: None

PATIENT
  Age: 17 Year
  Sex: Male

DRUGS (1)
  1. HUMIRA [Suspect]
     Active Substance: ADALIMUMAB
     Indication: RHEUMATOID ARTHRITIS
     Route: 058
     Dates: start: 20170309

REACTIONS (5)
  - Cough [None]
  - Malaise [None]
  - Immunosuppression [None]
  - Pyrexia [None]
  - Infection [None]

NARRATIVE: CASE EVENT DATE: 20170421
